FAERS Safety Report 9729169 (Version 1)
Quarter: 2013Q4

REPORT INFORMATION
  Report Type: Spontaneous
  Country: US (occurrence: None)
  Receive Date: 20131203
  Receipt Date: 20131203
  Transmission Date: 20140711
  Serious: No
  Sender: FDA-Public Use
  Company Number: None

PATIENT
  Age: 85 Year
  Sex: Male
  Weight: 83.5 kg

DRUGS (1)
  1. REGADENOSON [Suspect]
     Indication: ACUTE CORONARY SYNDROME
     Dates: start: 20131127, end: 20131127

REACTIONS (2)
  - Hypotension [None]
  - Bradycardia [None]
